FAERS Safety Report 14681310 (Version 2)
Quarter: 2018Q1

REPORT INFORMATION
  Report Type: Spontaneous
  Country: US (occurrence: US)
  Receive Date: 20180326
  Receipt Date: 20180329
  Transmission Date: 20180509
  Serious: Yes (Other)
  Sender: FDA-Public Use
  Company Number: US-PFIZER INC-2018122233

PATIENT
  Age: 46 Year
  Sex: Female

DRUGS (1)
  1. METHOTREXATE SODIUM. [Suspect]
     Active Substance: METHOTREXATE SODIUM
     Dosage: UNK UNK, WEEKLY (25 MG/ML INJECTION 1 CC EVERY WEEK)

REACTIONS (7)
  - Arthralgia [Unknown]
  - Neck pain [Unknown]
  - Nausea [Unknown]
  - Musculoskeletal stiffness [Unknown]
  - Back pain [Unknown]
  - Musculoskeletal pain [Unknown]
  - Wrist fracture [Unknown]

NARRATIVE: CASE EVENT DATE: 201709
